FAERS Safety Report 8452711 (Version 3)
Quarter: 2014Q2

REPORT INFORMATION
  Report Type: Spontaneous
  Country: US (occurrence: None)
  Receive Date: 20120302
  Receipt Date: 20140501
  Transmission Date: 20141212
  Serious: Yes (Death)
  Sender: FDA-Public Use
  Company Number: US-007815

PATIENT
  Age: 59 Year
  Sex: Male
  Weight: 48.99 kg

DRUGS (5)
  1. DEGARELIX [Suspect]
     Indication: PROSTATE CANCER METASTATIC
     Dosage: 240 MG 1X SUBCUTANEOUS
     Route: 058
     Dates: start: 20120103, end: 20120103
  2. FENTANYL [Concomitant]
  3. METHOCARBAMOL [Concomitant]
  4. DILAUDID [Concomitant]
  5. VITAMIN D [Concomitant]

REACTIONS (3)
  - Injection site pain [None]
  - Abdominal pain [None]
  - Pain [None]
